FAERS Safety Report 11309735 (Version 1)
Quarter: 2015Q3

REPORT INFORMATION
  Report Type: Spontaneous
  Country: US (occurrence: US)
  Receive Date: 20150724
  Receipt Date: 20150724
  Transmission Date: 20151125
  Serious: Yes (Hospitalization, Disabling, Other)
  Sender: FDA-Public Use
  Company Number: US-UCBSA-2015023597

PATIENT
  Sex: Female
  Weight: 72.5 kg

DRUGS (2)
  1. VIMPAT [Suspect]
     Active Substance: LACOSAMIDE
     Indication: CONVULSION PROPHYLAXIS
     Dosage: 1 TABLET IN THE MORNING AND 2 TABLETS AT NIGHT
     Route: 048
  2. VITAMIN D [Concomitant]
     Active Substance: CHOLECALCIFEROL
     Indication: PRODUCT USED FOR UNKNOWN INDICATION
     Dosage: UNK

REACTIONS (6)
  - Lower limb fracture [Recovered/Resolved]
  - Rib fracture [Recovered/Resolved]
  - Road traffic accident [Recovered/Resolved]
  - Memory impairment [Not Recovered/Not Resolved]
  - Sternal fracture [Recovered/Resolved]
  - Gait disturbance [Recovered/Resolved]

NARRATIVE: CASE EVENT DATE: 2012
